FAERS Safety Report 8769778 (Version 3)
Quarter: 2013Q1

REPORT INFORMATION
  Report Type: Spontaneous
  Country: US (occurrence: US)
  Receive Date: 20120905
  Receipt Date: 20130117
  Transmission Date: 20140127
  Serious: Yes (Hospitalization, Other)
  Sender: FDA-Public Use
  Company Number: US-MERCK-2012SP007256

PATIENT
  Sex: Male

DRUGS (6)
  1. RIBAVIRIN [Suspect]
     Indication: HEPATITIS C
     Dosage: UNK
     Dates: start: 20010202, end: 20020405
  2. RIBAVIRIN [Suspect]
     Dosage: UNK
     Dates: start: 20120203, end: 20121228
  3. VICTRELIS [Suspect]
     Indication: HEPATITIS C
     Dosage: UNK
     Route: 065
     Dates: start: 20120302, end: 20121005
  4. PEGASYS [Suspect]
     Indication: HEPATITIS C
     Dosage: UNK
     Route: 065
     Dates: start: 20120203, end: 20121228
  5. COPEGUS [Suspect]
     Indication: HEPATITIS C
     Dosage: UNK
     Route: 048
  6. COPEGUS [Suspect]
     Dosage: UNK
     Dates: start: 20120203

REACTIONS (12)
  - Cataract [Unknown]
  - Glaucoma [Unknown]
  - Hepatic cirrhosis [Unknown]
  - Blood potassium decreased [Unknown]
  - Eye haemorrhage [Unknown]
  - Retinal detachment [Unknown]
  - Post-traumatic stress disorder [Unknown]
  - Pain [Unknown]
  - Feeling cold [Unknown]
  - Influenza [Unknown]
  - Depression [Unknown]
  - Testicular swelling [Not Recovered/Not Resolved]
